FAERS Safety Report 5011797-4 (Version None)
Quarter: 2006Q2

REPORT INFORMATION
  Report Type: 
  Country: None (occurrence: None)
  Receive Date: 20060524
  Receipt Date: 20060524
  Transmission Date: 20061013
  Serious: Yes (Hospitalization)
  Sender: FDA-Public Use
  Company Number: None

PATIENT
  Age: 51 Year
  Sex: Male
  Weight: 58.6 kg

DRUGS (2)
  1. TENOFOVIR [Suspect]
     Dates: start: 20010101, end: 20060323
  2. LISINOPRIL [Suspect]
     Dosage: HTN

REACTIONS (3)
  - FANCONI SYNDROME [None]
  - OEDEMA PERIPHERAL [None]
  - RENAL ARTERY STENOSIS [None]
